FAERS Safety Report 7203176-6 (Version None)
Quarter: 2010Q4

REPORT INFORMATION
  Report Type: 
  Country: None (occurrence: None)
  Receive Date: 20101230
  Receipt Date: 20101221
  Transmission Date: 20110411
  Serious: Yes (Hospitalization)
  Sender: FDA-Public Use
  Company Number: US-BIOGENIDEC-2010BI040290

PATIENT
  Age: 56 Year
  Sex: Male

DRUGS (15)
  1. TYSABRI [Suspect]
     Indication: MULTIPLE SCLEROSIS
     Route: 042
     Dates: start: 20101101, end: 20101101
  2. BACLOFEN [Concomitant]
     Indication: MULTIPLE SCLEROSIS
  3. KLONOPIN [Concomitant]
     Indication: MULTIPLE SCLEROSIS
  4. AMPYRA [Concomitant]
     Indication: MULTIPLE SCLEROSIS
     Route: 048
  5. PENTOXIFYLLINE [Concomitant]
     Indication: MULTIPLE SCLEROSIS
     Route: 048
  6. ASPIRIN [Concomitant]
     Indication: CARDIOVASCULAR EVENT PROPHYLAXIS
     Route: 048
  7. ACETAMINOPHEN [Concomitant]
     Indication: PAIN
  8. ACETAMINOPHEN [Concomitant]
     Indication: PYREXIA
  9. VITAMIN E [Concomitant]
     Indication: SUPPLEMENTATION THERAPY
     Route: 048
  10. VITAMIN A [Concomitant]
     Indication: SUPPLEMENTATION THERAPY
     Route: 048
  11. VITAMIN D [Concomitant]
     Indication: SUPPLEMENTATION THERAPY
     Route: 048
  12. ASCORBIC ACID [Concomitant]
     Indication: SUPPLEMENTATION THERAPY
     Route: 048
  13. VITAMIN B-12 [Concomitant]
     Indication: SUPPLEMENTATION THERAPY
     Route: 048
  14. TIZANIDINE HCL [Concomitant]
     Indication: MULTIPLE SCLEROSIS
  15. MULTI-VITAMIN [Concomitant]
     Indication: SUPPLEMENTATION THERAPY
     Route: 048

REACTIONS (2)
  - CELLULITIS [None]
  - OSTEOMYELITIS [None]
